FAERS Safety Report 9603477 (Version 1)
Quarter: 2013Q4

REPORT INFORMATION
  Report Type: Spontaneous
  Country: RU (occurrence: RU)
  Receive Date: 20131007
  Receipt Date: 20131007
  Transmission Date: 20140711
  Serious: Yes (Life-Threatening)
  Sender: FDA-Public Use
  Company Number: RU-ABBVIE-13P-251-1154918-00

PATIENT
  Age: 32 Year
  Sex: Male

DRUGS (4)
  1. DEPAKINE CHRONOSPHERE [Suspect]
     Indication: PRODUCT USED FOR UNKNOWN INDICATION
     Route: 048
     Dates: end: 20130520
  2. MEXIDOL [Concomitant]
     Indication: PRODUCT USED FOR UNKNOWN INDICATION
  3. MEXIDOL [Concomitant]
     Indication: PRODUCT USED FOR UNKNOWN INDICATION
  4. VINPOCETINE [Concomitant]
     Indication: PRODUCT USED FOR UNKNOWN INDICATION

REACTIONS (3)
  - Grand mal convulsion [Recovering/Resolving]
  - Drug ineffective [Recovering/Resolving]
  - Loss of consciousness [Recovering/Resolving]
